FAERS Safety Report 8491899-0 (Version None)
Quarter: 2012Q3

REPORT INFORMATION
  Report Type: 
  Country: None (occurrence: None)
  Receive Date: 20120706
  Receipt Date: 20111121
  Transmission Date: 20120928
  Serious: No
  Sender: FDA-Public Use
  Company Number: US-GLAXOSMITHKLINE-A0954129A

PATIENT
  Age: 68 Year
  Sex: Female

DRUGS (14)
  1. BUPROPION HCL [Suspect]
     Dosage: 300MG PER DAY
  2. NAMENDA [Concomitant]
  3. MULTIPLE VITAMIN [Concomitant]
  4. SERTRALINE HYDROCHLORIDE [Suspect]
     Dosage: 200MG PER DAY
  5. MECLIZINE [Concomitant]
  6. EXELON [Concomitant]
  7. SEROQUEL [Suspect]
     Dosage: 25MG PER DAY
  8. VENTOLIN [Concomitant]
     Dates: start: 20090101
  9. PREMARIN [Concomitant]
  10. SINGULAIR [Concomitant]
  11. PRILOSEC [Concomitant]
  12. FLOVENT [Suspect]
     Indication: ASTHMA
     Dosage: 2PUFF TWICE PER DAY
     Route: 055
     Dates: start: 20090101, end: 20110301
  13. DEPLIN [Concomitant]
  14. BLOOD PRESSURE MEDICATION [Concomitant]

REACTIONS (5)
  - DRUG ADMINISTRATION ERROR [None]
  - DRY MOUTH [None]
  - OVERDOSE [None]
  - ORAL DISCOMFORT [None]
  - ORAL PAIN [None]
